FAERS Safety Report 6306638-9 (Version None)
Quarter: 2009Q3

REPORT INFORMATION
  Report Type: 
  Country: None (occurrence: None)
  Receive Date: 20090812
  Receipt Date: 20090803
  Transmission Date: 20100115
  Serious: Yes (Hospitalization)
  Sender: FDA-Public Use
  Company Number: B0586924A

PATIENT
  Sex: Female

DRUGS (9)
  1. COMBIVIR [Suspect]
     Indication: HIV INFECTION
     Route: 048
     Dates: start: 20090601
  2. BACTRIM [Suspect]
     Indication: PROPHYLAXIS
     Dosage: 1TAB PER DAY
     Route: 048
     Dates: start: 20090601
  3. KALETRA [Concomitant]
     Indication: HIV INFECTION
     Route: 065
     Dates: start: 20090601
  4. TRIFLUCAN [Concomitant]
     Indication: DRUG USE FOR UNKNOWN INDICATION
     Route: 065
  5. CORTANCYL [Concomitant]
     Indication: DRUG USE FOR UNKNOWN INDICATION
     Route: 065
  6. HEPARIN [Concomitant]
     Indication: DRUG USE FOR UNKNOWN INDICATION
     Route: 065
  7. ROCEPHIN [Concomitant]
     Route: 065
     Dates: start: 20090716
  8. ZITHROMAX [Concomitant]
     Route: 065
     Dates: start: 20090716
  9. FLAGYL [Concomitant]
     Route: 065
     Dates: start: 20090716

REACTIONS (4)
  - ANAEMIA [None]
  - APLASIA PURE RED CELL [None]
  - MEAN CELL VOLUME DECREASED [None]
  - PLASMACYTOSIS [None]
